FAERS Safety Report 22232092 (Version 1)
Quarter: 2023Q2

REPORT INFORMATION
  Report Type: Report from Study
  Country: US (occurrence: US)
  Receive Date: 20230420
  Receipt Date: 20230420
  Transmission Date: 20230721
  Serious: Yes (Other)
  Sender: FDA-Public Use
  Company Number: US-PTx-2022000093

PATIENT
  Age: 72 Year
  Sex: Male
  Weight: 66.678 kg

DRUGS (4)
  1. SARGRAMOSTIM [Suspect]
     Active Substance: SARGRAMOSTIM
     Indication: Neutropenia
     Dosage: 250 MCG/M2, SC
     Route: 058
     Dates: start: 20201113, end: 20201114
  2. METOPROLOL [Concomitant]
     Active Substance: METOPROLOL
     Indication: Product used for unknown indication
     Dosage: 25 MG ORAL
     Route: 048
     Dates: start: 20200904, end: 20210518
  3. LETERMOVIR [Concomitant]
     Active Substance: LETERMOVIR
     Indication: Product used for unknown indication
     Route: 048
     Dates: start: 20200930, end: 20210123
  4. PROCARDIA XL [Concomitant]
     Active Substance: NIFEDIPINE
     Indication: Product used for unknown indication
     Route: 048
     Dates: start: 20201102, end: 20210930

REACTIONS (1)
  - Febrile neutropenia [Recovered/Resolved]

NARRATIVE: CASE EVENT DATE: 20201112
